FAERS Safety Report 6934021 (Version 1)
Quarter: 2020Q3

REPORT INFORMATION
  Report Type: Report from Study
  Country: HR (occurrence: HR)
  Receive Date: 20090311
  Receipt Date: 20090311
  Transmission Date: 20201104
  Serious: Yes (Death)
  Sender: FDA-Public Use
  Company Number: HR-ROCHE-617965

PATIENT
  Sex: Female

DRUGS (1)
  1. IBANDRONIC ACID. [Suspect]
     Active Substance: IBANDRONIC ACID
     Indication: OSTEOPOROSIS POSTMENOPAUSAL
     Dosage: DOSE MONTHLY FOR 6 MONTHS
     Route: 048

REACTIONS (1)
  - Myocardial infarction [Fatal]
